FAERS Safety Report 9761019 (Version 1)
Quarter: 2013Q4

REPORT INFORMATION
  Report Type: Spontaneous
  Country: US (occurrence: None)
  Receive Date: 20131212
  Receipt Date: 20131212
  Transmission Date: 20140711
  Serious: Yes (Other)
  Sender: FDA-Public Use
  Company Number: 2013-US-004067

PATIENT
  Age: 36 Year
  Sex: Female

DRUGS (1)
  1. XYREM (SODIUM OXYBATE) ORAL SOLUTION, 500 MG/ML [Suspect]
     Indication: NARCOLEPSY
     Dosage: 2.25 G, BID, ORAL
     Route: 048
     Dates: start: 201302, end: 2013

REACTIONS (5)
  - Hyperthyroidism [None]
  - Mania [None]
  - Drug ineffective [None]
  - Drug effect prolonged [None]
  - Psychotic disorder [None]
